FAERS Safety Report 24966986 (Version 3)
Quarter: 2025Q2

REPORT INFORMATION
  Report Type: Spontaneous
  Country: US (occurrence: US)
  Receive Date: 20250213
  Receipt Date: 20250428
  Transmission Date: 20250716
  Serious: No
  Sender: BIOMARIN
  Company Number: US-BIOMARINAP-US-2025-163661

PATIENT

DRUGS (14)
  1. VIMIZIM [Suspect]
     Active Substance: ELOSULFASE ALFA
     Indication: Mucopolysaccharidosis IV
     Dosage: 85 MILLIGRAM, QW
     Route: 042
     Dates: start: 20230130
  2. SOLU-MEDROL [Suspect]
     Active Substance: METHYLPREDNISOLONE SODIUM SUCCINATE
     Indication: Product used for unknown indication
     Route: 065
  3. SOLU-CORTEF [Suspect]
     Active Substance: HYDROCORTISONE SODIUM SUCCINATE
     Indication: Product used for unknown indication
     Route: 065
  4. ACETAMINOPHEN [Concomitant]
     Active Substance: ACETAMINOPHEN
     Indication: Product used for unknown indication
  5. EPINEPHRINE [Concomitant]
     Active Substance: EPINEPHRINE
     Indication: Product used for unknown indication
  6. HEPARIN [Concomitant]
     Active Substance: HEPARIN SODIUM
     Indication: Product used for unknown indication
  7. DIPHENHYDRAMINE HYDROCHLORIDE [Concomitant]
     Active Substance: DIPHENHYDRAMINE HYDROCHLORIDE
     Indication: Product used for unknown indication
  8. ALBUTEROL SULFATE [Concomitant]
     Active Substance: ALBUTEROL SULFATE
     Indication: Product used for unknown indication
  9. METHYLPHENIDATE [Concomitant]
     Active Substance: METHYLPHENIDATE
     Indication: Product used for unknown indication
  10. CETIRIZINE HYDROCHLORIDE [Concomitant]
     Active Substance: CETIRIZINE HYDROCHLORIDE
     Indication: Product used for unknown indication
  11. HYDROCORTISONE [Concomitant]
     Active Substance: HYDROCORTISONE
     Indication: Product used for unknown indication
  12. LIDOCAINE AND PRILOCAINE [Concomitant]
     Active Substance: LIDOCAINE\PRILOCAINE
     Indication: Product used for unknown indication
  13. OXYGEN [Concomitant]
     Active Substance: OXYGEN
     Indication: Product used for unknown indication
  14. Lmx [Concomitant]
     Indication: Product used for unknown indication

REACTIONS (3)
  - Hypersensitivity [Unknown]
  - Feeling hot [Unknown]
  - Paraesthesia [Unknown]
